FAERS Safety Report 5124127-4 (Version None)
Quarter: 2006Q4

REPORT INFORMATION
  Report Type: 
  Country: None (occurrence: None)
  Receive Date: 20061010
  Receipt Date: 20060313
  Transmission Date: 20070319
  Serious: No
  Sender: FDA-Public Use
  Company Number: US-BRISTOL-MYERS SQUIBB COMPANY-13312087

PATIENT
  Age: 86 Year
  Sex: Male
  Weight: 84 kg

DRUGS (2)
  1. AVAPRO [Suspect]
     Indication: BLOOD PRESSURE INCREASED
     Dates: start: 20060301, end: 20060301
  2. FLOMAX [Concomitant]

REACTIONS (1)
  - DYSURIA [None]
